FAERS Safety Report 11867696 (Version 1)
Quarter: 2015Q4

REPORT INFORMATION
  Report Type: Spontaneous
  Country: US (occurrence: US)
  Receive Date: 20151224
  Receipt Date: 20151224
  Transmission Date: 20160305
  Serious: Yes (Life-Threatening, Hospitalization, Other)
  Sender: FDA-Public Use
  Company Number: US-MEDTRONIC-1045871

PATIENT
  Sex: Male

DRUGS (1)
  1. BACLOFEN. [Suspect]
     Active Substance: BACLOFEN
     Indication: MUSCLE SPASTICITY
     Route: 037

REACTIONS (5)
  - Altered state of consciousness [Unknown]
  - Sepsis [Unknown]
  - Confusional state [Unknown]
  - Malaise [Unknown]
  - Escherichia infection [Unknown]
